FAERS Safety Report 13883022 (Version 1)
Quarter: 2017Q3

REPORT INFORMATION
  Report Type: Report from Study
  Country: US (occurrence: US)
  Receive Date: 20170818
  Receipt Date: 20170818
  Transmission Date: 20171127
  Serious: Yes (Death)
  Sender: FDA-Public Use
  Company Number: US-ACTELION-A-NJ2017-158239

PATIENT
  Age: 71 Year
  Sex: Female

DRUGS (17)
  1. LIDOCAINE/PRILOCAINE [Concomitant]
     Active Substance: LIDOCAINE\PRILOCAINE
  2. AMLODIPINE [Concomitant]
     Active Substance: AMLODIPINE BESYLATE
  3. CALCIUM ACETATE. [Concomitant]
     Active Substance: CALCIUM ACETATE
  4. DILTIAZEM. [Concomitant]
     Active Substance: DILTIAZEM
  5. CARVEDILOL. [Concomitant]
     Active Substance: CARVEDILOL
     Dosage: 25 MG, UNK
  6. PANTOPRAZOLE [Concomitant]
     Active Substance: PANTOPRAZOLE
  7. HYDROCODONE/ACETAMINOPHEN [Concomitant]
     Active Substance: ACETAMINOPHEN\HYDROCODONE
  8. ATENOLOL. [Concomitant]
     Active Substance: ATENOLOL
  9. TERAZOSIN [Concomitant]
     Active Substance: TERAZOSIN\TERAZOSIN HYDROCHLORIDE
  10. BUDESONIDE. [Concomitant]
     Active Substance: BUDESONIDE
  11. TRACLEER [Suspect]
     Active Substance: BOSENTAN
     Indication: RHEUMATOID ARTHRITIS
     Dosage: 125 MG, BID
     Route: 048
     Dates: start: 20170525
  12. ELIQUIS [Concomitant]
     Active Substance: APIXABAN
  13. VERAPAMIL [Concomitant]
     Active Substance: VERAPAMIL HYDROCHLORIDE
  14. ISOSORBIDE MONONITRATE. [Concomitant]
     Active Substance: ISOSORBIDE MONONITRATE
  15. LISINOPRIL. [Concomitant]
     Active Substance: LISINOPRIL
  16. LORAZEPAM. [Concomitant]
     Active Substance: LORAZEPAM
  17. PREDNISONE. [Concomitant]
     Active Substance: PREDNISONE

REACTIONS (1)
  - Death [Fatal]
